FAERS Safety Report 5091373-8 (Version None)
Quarter: 2006Q3

REPORT INFORMATION
  Report Type: 
  Country: None (occurrence: None)
  Receive Date: 20060824
  Receipt Date: 20060808
  Transmission Date: 20061208
  Serious: Yes (Death, Other)
  Sender: FDA-Public Use
  Company Number: 430002L06FRA

PATIENT

DRUGS (1)
  1. NOVANTRONE [Suspect]
     Indication: NEUROMYELITIS OPTICA

REACTIONS (1)
  - ACUTE MYELOID LEUKAEMIA [None]
